FAERS Safety Report 8006957-4 (Version None)
Quarter: 2011Q4

REPORT INFORMATION
  Report Type: 
  Country: None (occurrence: None)
  Receive Date: 20111227
  Receipt Date: 20111220
  Transmission Date: 20120403
  Serious: Yes (Other)
  Sender: FDA-Public Use
  Company Number: US-JNJFOC-20111209373

PATIENT
  Age: 69 Year
  Sex: Female
  Weight: 65.77 kg

DRUGS (8)
  1. LIPITOR [Concomitant]
     Indication: PRODUCT USED FOR UNKNOWN INDICATION
     Dosage: SINCE YEARS
     Route: 065
  2. NORVASC [Concomitant]
     Indication: PRODUCT USED FOR UNKNOWN INDICATION
     Dosage: 5 DAYS INTERVAL
     Route: 065
  3. PROTONIX [Concomitant]
     Indication: PRODUCT USED FOR UNKNOWN INDICATION
     Dosage: SINCE 6 YEARS
     Route: 065
     Dates: start: 20050101
  4. ZYRTEC [Suspect]
     Route: 048
  5. LORAZEPAM [Concomitant]
     Indication: PRODUCT USED FOR UNKNOWN INDICATION
     Dosage: SINCE 5 TO 6 YEARS
     Route: 065
  6. INHALER (UNSPECIFIED) [Concomitant]
     Indication: PRODUCT USED FOR UNKNOWN INDICATION
     Dosage: AS NEEDED SINCE 7 YEARS
     Route: 065
     Dates: start: 20040101
  7. AMBIEN [Concomitant]
     Indication: PRODUCT USED FOR UNKNOWN INDICATION
     Dosage: AT BED TIME, SINCE 5 TO 6 YEARS
     Route: 065
  8. ZYRTEC [Suspect]
     Indication: ALLERGY TO ANIMAL
     Route: 048
     Dates: start: 20111015, end: 20111220

REACTIONS (6)
  - FEELING ABNORMAL [None]
  - OFF LABEL USE [None]
  - HYPOTENSION [None]
  - WRONG DRUG ADMINISTERED [None]
  - SYNCOPE [None]
  - DIZZINESS [None]
